FAERS Safety Report 5909050-7 (Version None)
Quarter: 2008Q3

REPORT INFORMATION
  Report Type: 
  Country: None (occurrence: None)
  Receive Date: 20080929
  Receipt Date: 20080923
  Transmission Date: 20090109
  Serious: Yes (Hospitalization)
  Sender: FDA-Public Use
  Company Number: 2008AL008279

PATIENT
  Age: 69 Year
  Sex: Male
  Weight: 149.687 kg

DRUGS (20)
  1. DIGOXIN [Suspect]
     Indication: CARDIAC DISORDER
     Dosage: 0.25MG, DAILY, PO
     Route: 048
     Dates: start: 20061005
  2. AMIODARONE [Concomitant]
  3. COUMADIN [Concomitant]
  4. COREG [Concomitant]
  5. AVALIDE [Concomitant]
  6. CRESTOR [Concomitant]
  7. PLAVIX [Concomitant]
  8. VITAMIN E [Concomitant]
  9. MULTI-VITAMIN [Concomitant]
  10. CALCIUM MAGNESIUM [Concomitant]
  11. ASPIRIN [Concomitant]
  12. ASCORBIC ACID [Concomitant]
  13. ZINC [Concomitant]
  14. SENIOR VITAMIN [Concomitant]
  15. LANTUS AND NOVOLOG INSULIN [Concomitant]
  16. LASIX [Concomitant]
  17. K-DUR [Concomitant]
  18. ALDACTONE [Concomitant]
  19. NORVASC [Concomitant]
  20. RESTORIL [Concomitant]

REACTIONS (27)
  - ABDOMINAL DISTENSION [None]
  - ARTERIOSCLEROSIS CORONARY ARTERY [None]
  - ASTHENIA [None]
  - ATRIAL FIBRILLATION [None]
  - BACK PAIN [None]
  - BRADYCARDIA [None]
  - CARDIAC MURMUR [None]
  - CHEST PAIN [None]
  - DISEASE RECURRENCE [None]
  - DYSPNOEA [None]
  - DYSPNOEA EXERTIONAL [None]
  - FALL [None]
  - FATIGUE [None]
  - FLUID RETENTION [None]
  - GALLOP RHYTHM PRESENT [None]
  - HYPERTENSION [None]
  - HYPOTENSION [None]
  - INSOMNIA [None]
  - INTERNATIONAL NORMALISED RATIO INCREASED [None]
  - OEDEMA [None]
  - OEDEMA PERIPHERAL [None]
  - ORTHOPNOEA [None]
  - PHARMACEUTICAL PRODUCT COMPLAINT [None]
  - SINUS CONGESTION [None]
  - SLEEP APNOEA SYNDROME [None]
  - WEIGHT INCREASED [None]
  - WOUND [None]
